FAERS Safety Report 19792501 (Version 1)
Quarter: 2021Q3

REPORT INFORMATION
  Report Type: Spontaneous
  Country: US (occurrence: US)
  Receive Date: 20210906
  Receipt Date: 20210906
  Transmission Date: 20211014
  Serious: Yes (Hospitalization)
  Sender: FDA-Public Use
  Company Number: US-AVEO ONCOLOGY-2021-AVEO-US003541

PATIENT

DRUGS (23)
  1. LEVOTHYROXINE SODIUM. [Concomitant]
     Active Substance: LEVOTHYROXINE SODIUM
  2. MAGNESIUM OXIDE. [Concomitant]
     Active Substance: MAGNESIUM OXIDE
  3. METOPROLOL. [Concomitant]
     Active Substance: METOPROLOL
  4. XARELTO [Concomitant]
     Active Substance: RIVAROXABAN
  5. AUGMENTIN [Concomitant]
     Active Substance: AMOXICILLIN\CLAVULANATE POTASSIUM
  6. ONDANSETRON [Concomitant]
     Active Substance: ONDANSETRON
  7. PROCHLORPERAZINE. [Concomitant]
     Active Substance: PROCHLORPERAZINE
  8. VITAMIN D3 [Concomitant]
     Active Substance: CHOLECALCIFEROL
  9. HYDROCODONE/ACETAMINOPHEN [Concomitant]
     Active Substance: ACETAMINOPHEN\HYDROCODONE
  10. FOTIVDA [Suspect]
     Active Substance: TIVOZANIB HYDROCHLORIDE
     Indication: RENAL CELL CARCINOMA
     Dosage: 1.34 MG, DAILY FOR 21 DAYS ON 7 DAYS OFF
     Dates: start: 20210507
  11. CYANOCOBALAMIN. [Concomitant]
     Active Substance: CYANOCOBALAMIN
  12. LISINOPRIL. [Concomitant]
     Active Substance: LISINOPRIL
  13. VOTRIENT [Concomitant]
     Active Substance: PAZOPANIB HYDROCHLORIDE
  14. AMLODIPINE [Concomitant]
     Active Substance: AMLODIPINE BESYLATE
  15. INDOMETHACIN. [Concomitant]
     Active Substance: INDOMETHACIN
  16. OXYCODONE [Concomitant]
     Active Substance: OXYCODONE
  17. FOLIC ACID. [Concomitant]
     Active Substance: FOLIC ACID
  18. LIDOCAINE/PRILOCAINE [Concomitant]
     Active Substance: LIDOCAINE\PRILOCAINE
  19. ASPIRIN. [Concomitant]
     Active Substance: ASPIRIN
  20. ATORVASTATIN [Concomitant]
     Active Substance: ATORVASTATIN
  21. CARDURAN [Concomitant]
     Active Substance: DOXAZOSIN MESYLATE
  22. DOXAZOSIN [Concomitant]
     Active Substance: DOXAZOSIN MESYLATE
  23. FUROSEMIDE. [Concomitant]
     Active Substance: FUROSEMIDE

REACTIONS (4)
  - Decreased appetite [Unknown]
  - Dyspnoea [Unknown]
  - Dizziness [Unknown]
  - Dyspnoea [Unknown]

NARRATIVE: CASE EVENT DATE: 20210826
